FAERS Safety Report 25741536 (Version 1)
Quarter: 2025Q3

REPORT INFORMATION
  Report Type: Spontaneous
  Country: US (occurrence: US)
  Receive Date: 20250829
  Receipt Date: 20250829
  Transmission Date: 20251020
  Serious: Yes (Other)
  Sender: BLUEPRINT MEDICINES
  Company Number: US-Blueprint Medicines Corporation-2025-AER-01874

PATIENT
  Age: 42 Year

DRUGS (1)
  1. AYVAKIT [Suspect]
     Active Substance: AVAPRITINIB
     Indication: Systemic mastocytosis
     Route: 065
     Dates: start: 20250524

REACTIONS (5)
  - Systemic mastocytosis [Unknown]
  - Condition aggravated [Unknown]
  - Anaemia [Unknown]
  - Aspartate aminotransferase abnormal [Unknown]
  - Gastrooesophageal reflux disease [Unknown]
